FAERS Safety Report 16280686 (Version 1)
Quarter: 2019Q2

REPORT INFORMATION
  Report Type: Spontaneous
  Country: US (occurrence: US)
  Receive Date: 20190402
  Receipt Date: 20190402
  Transmission Date: 20190711
  Serious: No
  Sender: FDA-Public Use
  Company Number: None

PATIENT

DRUGS (1)
  1. CALMOSEPTINE [Suspect]
     Active Substance: MENTHOL\ZINC OXIDE

REACTIONS (1)
  - Product expiration date issue [None]
